FAERS Safety Report 12467555 (Version 1)
Quarter: 2016Q2

REPORT INFORMATION
  Report Type: Spontaneous
  Country: US (occurrence: None)
  Receive Date: 20160614
  Receipt Date: 20160614
  Transmission Date: 20160815
  Serious: Yes (Disabling)
  Sender: FDA-Public Use
  Company Number: None

PATIENT
  Age: 59 Year
  Sex: Male
  Weight: 93.44 kg

DRUGS (12)
  1. TYLENOL [Concomitant]
     Active Substance: ACETAMINOPHEN
  2. FLOMAX [Concomitant]
     Active Substance: TAMSULOSIN HYDROCHLORIDE
  3. FISH OIL [Concomitant]
     Active Substance: FISH OIL
  4. GLYCINE. [Concomitant]
     Active Substance: GLYCINE
  5. VENLAFAXINE [Suspect]
     Active Substance: VENLAFAXINE HYDROCHLORIDE
     Indication: PAIN
     Route: 048
     Dates: start: 20150909, end: 20160524
  6. ZANTAC [Concomitant]
     Active Substance: RANITIDINE HYDROCHLORIDE
  7. FLUTICASONE [Concomitant]
     Active Substance: FLUTICASONE\FLUTICASONE PROPIONATE
  8. ASPIRIN. [Concomitant]
     Active Substance: ASPIRIN
  9. VENLAFAXINE [Suspect]
     Active Substance: VENLAFAXINE HYDROCHLORIDE
     Indication: OFF LABEL USE
     Route: 048
     Dates: start: 20150909, end: 20160524
  10. NUCYNTA [Concomitant]
     Active Substance: TAPENTADOL HYDROCHLORIDE
  11. COLACE [Concomitant]
     Active Substance: DOCUSATE SODIUM
  12. DRAMAMINE [Concomitant]
     Active Substance: DIMENHYDRINATE

REACTIONS (11)
  - Swelling [None]
  - Dizziness [None]
  - Insomnia [None]
  - Fatigue [None]
  - Headache [None]
  - Blood cholesterol increased [None]
  - Drug withdrawal syndrome [None]
  - Blood pressure increased [None]
  - Impaired work ability [None]
  - Nausea [None]
  - Chills [None]

NARRATIVE: CASE EVENT DATE: 20160508
